FAERS Safety Report 5425745-6 (Version None)
Quarter: 2007Q3

REPORT INFORMATION
  Report Type: 
  Country: None (occurrence: None)
  Receive Date: 20070731
  Receipt Date: 20070502
  Transmission Date: 20080115
  Serious: No
  Sender: FDA-Public Use
  Company Number: 2007PV031753

PATIENT
  Age: 54 Year
  Sex: Female
  Weight: 151.1 kg

DRUGS (16)
  1. EXENATIDE(EXENATIDE) PEN,DISPOSABLE [Suspect]
     Indication: TYPE 2 DIABETES MELLITUS
     Dosage: 10 UG; 2/D, SUBCUTANEOUS, 5 UG; 2/D, SUBCUTANEOUS
     Route: 058
     Dates: start: 20070210, end: 20070301
  2. EXENATIDE(EXENATIDE) PEN,DISPOSABLE [Suspect]
     Indication: TYPE 2 DIABETES MELLITUS
     Dosage: 10 UG; 2/D, SUBCUTANEOUS, 5 UG; 2/D, SUBCUTANEOUS
     Route: 058
     Dates: start: 20070301
  3. HUMULIN N [Concomitant]
  4. HUMULIN R (INSULN HUMAN) [Concomitant]
  5. TOPROL-XL [Concomitant]
  6. VYTORIN [Concomitant]
  7. LEVOXYL [Concomitant]
  8. AVAPRO [Concomitant]
  9. LASIX [Concomitant]
  10. COLACE (DOCUSATE SODIUM) [Concomitant]
  11. PROCRIT [Concomitant]
  12. ASPIRIN [Concomitant]
  13. FOLATE (FOLIC ACID) [Concomitant]
  14. LORTAB [Concomitant]
  15. CALCIUM (CALCIUM) [Concomitant]
  16. AMLODIPINE [Concomitant]

REACTIONS (3)
  - BLOOD CREATININE INCREASED [None]
  - EARLY SATIETY [None]
  - WEIGHT DECREASED [None]
